FAERS Safety Report 9822127 (Version 1)
Quarter: 2014Q1

REPORT INFORMATION
  Report Type: Spontaneous
  Country: TR (occurrence: None)
  Receive Date: 20140115
  Receipt Date: 20140115
  Transmission Date: 20141002
  Serious: Yes (Life-Threatening, Hospitalization)
  Sender: FDA-Public Use
  Company Number: 2014-TR-000213

PATIENT
  Age: 29 Year
  Sex: Male

DRUGS (1)
  1. CLOZAPINE [Suspect]
     Indication: SCHIZOPHRENIA
     Route: 048

REACTIONS (7)
  - Metabolic acidosis [None]
  - Epilepsy [None]
  - Suicide attempt [None]
  - Haemodialysis [None]
  - Urinary incontinence [None]
  - Depression [None]
  - Confusional state [None]
